FAERS Safety Report 20161766 (Version 1)
Quarter: 2021Q4

REPORT INFORMATION
  Report Type: Spontaneous
  Country: RU (occurrence: RU)
  Receive Date: 20211208
  Receipt Date: 20211208
  Transmission Date: 20220303
  Serious: Yes (Other)
  Sender: FDA-Public Use
  Company Number: RU-R-PHARM US LLC-2021RPM00019

PATIENT
  Age: 53 Year
  Sex: Female

DRUGS (2)
  1. IXEMPRA [Suspect]
     Active Substance: IXABEPILONE
     Dosage: 40 MG/M2, 1ST DAY UP TO 6 COURSES
     Route: 042
  2. CAPECITABINE [Suspect]
     Active Substance: CAPECITABINE
     Dosage: 2000 MG/M2 1-14 DAYS
     Route: 042

REACTIONS (8)
  - Metastases to liver [Unknown]
  - Disease progression [Unknown]
  - Anaemia [Recovered/Resolved]
  - Thrombocytopenia [Recovered/Resolved]
  - Neutropenia [Recovered/Resolved]
  - Neuropathy peripheral [Recovered/Resolved]
  - Lymph nodes scan abnormal [Unknown]
  - Palmar-plantar erythrodysaesthesia syndrome [Recovered/Resolved]

NARRATIVE: CASE EVENT DATE: 20210201
